FAERS Safety Report 10404208 (Version 1)
Quarter: 2014Q1

REPORT INFORMATION
  Report Type: Spontaneous
  Country: US (occurrence: None)
  Receive Date: 20140109
  Receipt Date: 20140109
  Transmission Date: 20141002
  Serious: No
  Sender: FDA-Public Use
  Company Number: PHEH2013US023835

PATIENT
  Age: 66 Year
  Sex: Female

DRUGS (1)
  1. SIGNIFOR (PASIREOTIDE) UNKNOWN [Suspect]
     Indication: CUSHING^S SYNDROME

REACTIONS (3)
  - Hyperphagia [None]
  - Vertigo [None]
  - Faeces hard [None]
